FAERS Safety Report 7057975-4 (Version None)
Quarter: 2010Q4

REPORT INFORMATION
  Report Type: 
  Country: None (occurrence: None)
  Receive Date: 20101022
  Receipt Date: 20101019
  Transmission Date: 20110411
  Serious: Yes (Death, Other)
  Sender: FDA-Public Use
  Company Number: US-PFIZER INC-2009219686

PATIENT
  Sex: Female
  Weight: 55.329 kg

DRUGS (1)
  1. CELEBREX [Suspect]
     Indication: PAIN
     Dosage: 200 MG DAILY
     Route: 048
     Dates: start: 20080829, end: 20081001

REACTIONS (5)
  - ABDOMINAL DISCOMFORT [None]
  - APHAGIA [None]
  - CEREBROVASCULAR ACCIDENT [None]
  - MALNUTRITION [None]
  - WEIGHT DECREASED [None]
